FAERS Safety Report 16582832 (Version 2)
Quarter: 2019Q3

REPORT INFORMATION
  Report Type: Report from Study
  Country: AU (occurrence: AU)
  Receive Date: 20190717
  Receipt Date: 20190802
  Transmission Date: 20191004
  Serious: Yes (Hospitalization)
  Sender: FDA-Public Use
  Company Number: AU-EMD SERONO-9099567

PATIENT
  Age: 25 Year
  Sex: Male

DRUGS (1)
  1. MAVENCLAD [Suspect]
     Active Substance: CLADRIBINE
     Indication: PRODUCT USED FOR UNKNOWN INDICATION
     Dosage: FIRST WEEK THERAPY: TWO TABLETS ON DAYS 1 TO 3 AND ONE TABLET ON DAYS 4 TO 5 (AS PER THE WEIGHT FOR
     Dates: start: 20190603

REACTIONS (9)
  - Nausea [Not Recovered/Not Resolved]
  - Gait disturbance [Unknown]
  - Wound infection [Unknown]
  - Vomiting [Unknown]
  - Skin lesion [Unknown]
  - Fall [Unknown]
  - Limb injury [Unknown]
  - Fatigue [Unknown]
  - Influenza [Unknown]

NARRATIVE: CASE EVENT DATE: 201906
